FAERS Safety Report 5501971-2 (Version None)
Quarter: 2007Q4

REPORT INFORMATION
  Report Type: 
  Country: None (occurrence: None)
  Receive Date: 20071030
  Receipt Date: 20071018
  Transmission Date: 20080405
  Serious: Yes (Hospitalization)
  Sender: FDA-Public Use
  Company Number: FR-SOLVAY-00207034556

PATIENT
  Age: 973 Month
  Sex: Female

DRUGS (9)
  1. COVERSYL [Suspect]
     Indication: ILL-DEFINED DISORDER
     Dosage: DAILY DOSE:  UNKNOWN
     Route: 048
     Dates: end: 20070919
  2. CORDARONE [Suspect]
     Indication: ATRIAL FIBRILLATION
     Dosage: DAILY DOSE:  UNKNOWN
     Route: 048
     Dates: end: 20070912
  3. TAHOR [Suspect]
     Indication: ILL-DEFINED DISORDER
     Dosage: DAILY DOSE:  UNKNOWN
     Route: 048
     Dates: end: 20070919
  4. MEDIATENSYL [Suspect]
     Indication: ILL-DEFINED DISORDER
     Dosage: DAILY DOSE:  UNKNOWN
     Route: 048
     Dates: end: 20070919
  5. LASIX [Suspect]
     Indication: ILL-DEFINED DISORDER
     Dosage: DAILY DOSE:  UNKNOWN
     Route: 048
     Dates: end: 20070801
  6. LASIX [Suspect]
     Dosage: DAILY DOSE:  UNKNOWN
     Route: 048
     Dates: start: 20070801, end: 20070919
  7. LASIX [Suspect]
     Dosage: DAILY DOSE:  UNKNOWN, INTERMITTENTLY
     Route: 048
     Dates: start: 20070919
  8. LEVOTHYROX [Suspect]
     Indication: HYPOTHYROIDISM
     Dosage: DAILY DOSE:  UNKNOWN
     Route: 048
  9. PLAVIX [Suspect]
     Indication: ILL-DEFINED DISORDER
     Dosage: DAILY DOSE:  UNKNOWN
     Route: 048
     Dates: end: 20070919

REACTIONS (3)
  - DYSPNOEA [None]
  - OEDEMA PERIPHERAL [None]
  - PNEUMONITIS [None]
